FAERS Safety Report 11777970 (Version 4)
Quarter: 2016Q1

REPORT INFORMATION
  Report Type: Spontaneous
  Country: US (occurrence: US)
  Receive Date: 20151125
  Receipt Date: 20160129
  Transmission Date: 20160525
  Serious: Yes (Hospitalization, Other)
  Sender: FDA-Public Use
  Company Number: US-UNITED THERAPEUTICS-UNT-2015-014768

PATIENT
  Age: 60 Year
  Sex: Female
  Weight: 54.88 kg

DRUGS (4)
  1. TYVASO [Suspect]
     Active Substance: TREPROSTINIL
     Dosage: UNK
  2. TYVASO [Suspect]
     Active Substance: TREPROSTINIL
     Indication: PULMONARY HYPERTENSION
     Dosage: 108-126 ?G QID
     Dates: start: 20130729
  3. TYVASO [Suspect]
     Active Substance: TREPROSTINIL
     Dosage: UNK
  4. OPSUMIT [Concomitant]
     Active Substance: MACITENTAN
     Indication: PRODUCT USED FOR UNKNOWN INDICATION

REACTIONS (10)
  - Respiratory syncytial virus infection [Unknown]
  - Clostridium difficile infection [Unknown]
  - Product use issue [Unknown]
  - Pneumonia bacterial [Unknown]
  - Asthenia [Unknown]
  - Slow response to stimuli [Unknown]
  - Bronchitis [Unknown]
  - Diarrhoea [Unknown]
  - Spinal fracture [Unknown]
  - Dehydration [Unknown]

NARRATIVE: CASE EVENT DATE: 201511
